FAERS Safety Report 7647859-2 (Version None)
Quarter: 2011Q3

REPORT INFORMATION
  Report Type: 
  Country: None (occurrence: None)
  Receive Date: 20110801
  Receipt Date: 20110717
  Transmission Date: 20111222
  Serious: No
  Sender: FDA-Public Use
  Company Number: US-B.I. PHARMACEUTICALS,INC./RIDGEFIELD-2010-BP-05084BP

PATIENT
  Sex: Female

DRUGS (8)
  1. ATIVAN [Concomitant]
     Indication: SLEEP DISORDER
  2. SPIRIVA [Suspect]
     Indication: CHRONIC OBSTRUCTIVE PULMONARY DISEASE
     Dosage: 18 MCG
     Route: 055
     Dates: start: 20100401
  3. ATENOLOL [Concomitant]
     Indication: HYPERTENSION
     Dosage: 25 MG
     Route: 048
  4. LIPITOR [Concomitant]
     Indication: BLOOD CHOLESTEROL INCREASED
     Dosage: 30 MG
     Route: 048
  5. DOXAZOSIN MESYLATE [Concomitant]
     Indication: HYPERTENSION
  6. ASPIRIN [Concomitant]
     Indication: ROUTINE HEALTH MAINTENANCE
     Route: 048
  7. PAXIL [Concomitant]
     Indication: DEPRESSION
     Dosage: 20 MG
     Route: 048
  8. PAXIL [Concomitant]
     Indication: ANXIETY

REACTIONS (12)
  - CONSTIPATION [None]
  - CATARACT [None]
  - FATIGUE [None]
  - DRY MOUTH [None]
  - GLAUCOMA [None]
  - EYE INFECTION [None]
  - DYSPHONIA [None]
  - ABNORMAL DREAMS [None]
  - RECTAL HAEMORRHAGE [None]
  - CANDIDIASIS [None]
  - TONGUE DISCOLOURATION [None]
  - PROCTALGIA [None]
